FAERS Safety Report 12491493 (Version 1)
Quarter: 2016Q2

REPORT INFORMATION
  Report Type: Spontaneous
  Country: US (occurrence: None)
  Receive Date: 20160622
  Receipt Date: 20160622
  Transmission Date: 20160815
  Serious: Yes (Other)
  Sender: FDA-Public Use
  Company Number: None

PATIENT
  Age: 67 Year
  Sex: Female
  Weight: 81.65 kg

DRUGS (8)
  1. MONTELUKAST SODIUM. [Concomitant]
     Active Substance: MONTELUKAST SODIUM
  2. AZELASTINE HYDROCHLORIDE. [Suspect]
     Active Substance: AZELASTINE HYDROCHLORIDE
     Indication: HYPERSENSITIVITY
     Route: 055
     Dates: start: 20160608, end: 20160611
  3. WALGREENS PRENATAL MULTIVITAMIN [Concomitant]
  4. FAMOTIDINE. [Concomitant]
     Active Substance: FAMOTIDINE
  5. DIPHENHYDRAMINE HYDROCHLORIDE. [Concomitant]
     Active Substance: DIPHENHYDRAMINE HYDROCHLORIDE
  6. DOCTORS BEST HYALURONIC ACID WITH CHONDROITIN SULFATE [Concomitant]
  7. PRESCRIPTION NASAL SPRAYS [Concomitant]
  8. GLUCOSAMINE AND CHONDROITIN [Concomitant]
     Active Substance: CHONDROITIN SULFATE (BOVINE)\GLUCOSAMINE HYDROCHLORIDE

REACTIONS (6)
  - Vertigo [None]
  - Dizziness [None]
  - Alcohol use [None]
  - Somnolence [None]
  - Middle insomnia [None]
  - Vomiting [None]

NARRATIVE: CASE EVENT DATE: 20160611
